FAERS Safety Report 10306101 (Version 1)
Quarter: 2014Q3

REPORT INFORMATION
  Report Type: Spontaneous
  Country: CM (occurrence: None)
  Receive Date: 20140711
  Receipt Date: 20140711
  Transmission Date: 20150326
  Serious: Yes (Life-Threatening, Hospitalization)
  Sender: FDA-Public Use
  Company Number: 2014AMD00038

PATIENT
  Age: 21 Year
  Sex: Female

DRUGS (2)
  1. ALBENDAZOLE TABLETS (ALBENDAZOLE) TABLET [Suspect]
     Active Substance: ALBENDAZOLE
     Dosage: 1 TABLET, TOTAL DAILY DOSE
     Dates: start: 20140617
  2. MECTIZAN [Suspect]
     Active Substance: IVERMECTIN
     Dosage: 4 TABLET, TOTAL DAILY DOSE
     Dates: start: 20140617

REACTIONS (4)
  - Headache [None]
  - Pruritus generalised [None]
  - Rash [None]
  - Ocular hyperaemia [None]

NARRATIVE: CASE EVENT DATE: 20140618
